FAERS Safety Report 5978921-8 (Version None)
Quarter: 2008Q4

REPORT INFORMATION
  Report Type: 
  Country: None (occurrence: None)
  Receive Date: 20081204
  Receipt Date: 20081125
  Transmission Date: 20090506
  Serious: Yes (Other)
  Sender: FDA-Public Use
  Company Number: PHHO2008IT14120

PATIENT
  Sex: Male
  Weight: 57 kg

DRUGS (1)
  1. TASIGNA [Suspect]
     Indication: CHRONIC MYELOID LEUKAEMIA
     Dosage: 600MG
     Route: 048
     Dates: start: 20060326

REACTIONS (2)
  - ANGIOPATHY [None]
  - TOE AMPUTATION [None]
